FAERS Safety Report 9500037 (Version 1)
Quarter: 2013Q1

REPORT INFORMATION
  Report Type: Spontaneous
  Country: US (occurrence: None)
  Receive Date: 20130107
  Receipt Date: 20130107
  Transmission Date: 20140127
  Serious: No
  Sender: FDA-Public Use
  Company Number: PHEH2012US022701

PATIENT
  Sex: Female
  Weight: 56.7 kg

DRUGS (10)
  1. GILENYA (FINGOLIMOD) CAPSULE [Suspect]
     Indication: MULTIPLE SCLEROSIS
     Route: 048
  2. MAGNESIUM (MAGNESIUM) [Concomitant]
  3. B-12 (CYANOCOBALAMIN) [Concomitant]
  4. DIGESTIVE ENZYMES (BETAINE HYDROCHLORIDE, BROMELAINS, CELLULASE, PANCREATIN, PAPAIN) [Concomitant]
  5. EVENING PRIMROSE OIL (OENOTHERA BIENNIS OIL) [Concomitant]
  6. COQ-10 (UBIDECARENONE) [Concomitant]
  7. ZYRTEC ALLERGY (CETIRIZINE HYDROCHLORIDE) [Concomitant]
  8. FLAXSEED OIL (LINUM USITATISSIMUM SEED OIL) [Concomitant]
  9. QUERCETIN (QUERCETIN) [Concomitant]
  10. PROBIOTICS (NO INGREDIENTS/SUBSTANCES) [Concomitant]

REACTIONS (1)
  - Temperature intolerance [None]
